FAERS Safety Report 23768892 (Version 2)
Quarter: 2024Q2

REPORT INFORMATION
  Report Type: Report from Study
  Country: BA (occurrence: BA)
  Receive Date: 20240422
  Receipt Date: 20240529
  Transmission Date: 20240716
  Serious: Yes (Death, Other)
  Sender: FDA-Public Use
  Company Number: BA-TAKEDA-2024TUS037591

PATIENT
  Sex: Female

DRUGS (1)
  1. BRIGATINIB [Suspect]
     Active Substance: BRIGATINIB
     Indication: Non-small cell lung cancer
     Dosage: 180 MILLIGRAM, QD
     Route: 065
     Dates: start: 20231201, end: 20240403

REACTIONS (3)
  - Non-small cell lung cancer [Fatal]
  - Metastases to the mediastinum [Fatal]
  - Metastases to liver [Fatal]
